FAERS Safety Report 9899423 (Version 2)
Quarter: 2014Q1

REPORT INFORMATION
  Report Type: Report from Study
  Country: US (occurrence: KR)
  Receive Date: 20140214
  Receipt Date: 20140310
  Transmission Date: 20141002
  Serious: Yes (Death, Hospitalization)
  Sender: FDA-Public Use
  Company Number: KR-FRI-1000054152

PATIENT
  Age: 69 Year
  Sex: Male
  Weight: 69 kg

DRUGS (7)
  1. ROFLUMILAST [Suspect]
     Indication: CHRONIC OBSTRUCTIVE PULMONARY DISEASE
     Dosage: 500 MCG
     Route: 048
     Dates: start: 20131211
  2. SYMBICORT TURBUHALER [Concomitant]
     Dates: start: 20131111
  3. SPIRIVA RESPIMAT [Concomitant]
     Dates: start: 20131111
  4. HEBRON-F TAB [Concomitant]
     Dates: start: 20120911
  5. AZEPTIN TAB [Concomitant]
     Dates: start: 20121201
  6. COUGH SYRUP [Concomitant]
     Dates: start: 20131111
  7. ALMAGEL TAB [Concomitant]
     Dates: start: 20120911

REACTIONS (1)
  - Haemoptysis [Fatal]
